FAERS Safety Report 7231710-9 (Version None)
Quarter: 2011Q1

REPORT INFORMATION
  Report Type: 
  Country: None (occurrence: None)
  Receive Date: 20110118
  Receipt Date: 20110108
  Transmission Date: 20110831
  Serious: Yes (Life-Threatening, Hospitalization)
  Sender: FDA-Public Use
  Company Number: MX-BRISTOL-MYERS SQUIBB COMPANY-15480700

PATIENT
  Age: 91 Year
  Sex: Female

DRUGS (3)
  1. BLINDED: PLACEBO [Suspect]
     Indication: TYPE 2 DIABETES MELLITUS
     Dates: start: 20101027
  2. SAXAGLIPTIN [Suspect]
     Indication: TYPE 2 DIABETES MELLITUS
     Dosage: INTERRUPTED ON 06JAN11
     Route: 048
     Dates: start: 20101027
  3. GLYBURIDE [Suspect]

REACTIONS (1)
  - HYPOGLYCAEMIA [None]
